APPROVED DRUG PRODUCT: PIROXICAM
Active Ingredient: PIROXICAM
Strength: 20MG
Dosage Form/Route: CAPSULE;ORAL
Application: A073638 | Product #001
Applicant: TEVA PHARMACEUTICALS USA INC
Approved: Jan 28, 1994 | RLD: No | RS: No | Type: DISCN